FAERS Safety Report 4843870-5 (Version None)
Quarter: 2005Q4

REPORT INFORMATION
  Report Type: 
  Country: None (occurrence: None)
  Receive Date: 20051130
  Receipt Date: 20051130
  Transmission Date: 20060501
  Serious: Yes (Life-Threatening)
  Sender: FDA-Public Use
  Company Number: None

PATIENT
  Sex: Male
  Weight: 68.4932 kg

DRUGS (2)
  1. EPZICOM [Suspect]
     Indication: ACQUIRED IMMUNODEFICIENCY SYNDROME
     Dosage: 1 TABLET DAILY PO
     Route: 048
     Dates: start: 20051024, end: 20051031
  2. EPZICOM [Suspect]
     Indication: HIV INFECTION
     Dosage: 1 TABLET DAILY PO
     Route: 048
     Dates: start: 20051024, end: 20051031

REACTIONS (5)
  - COUGH [None]
  - PNEUMONIA [None]
  - PYREXIA [None]
  - RASH PRURITIC [None]
  - SKIN EXFOLIATION [None]
